FAERS Safety Report 18558722 (Version 1)
Quarter: 2020Q4

REPORT INFORMATION
  Report Type: Spontaneous
  Country: US (occurrence: US)
  Receive Date: 20201130
  Receipt Date: 20201130
  Transmission Date: 20210114
  Serious: No
  Sender: FDA-Public Use
  Company Number: US-SUNOVION-2020SUN003551

PATIENT
  Sex: Male

DRUGS (2)
  1. RYTARY [Suspect]
     Active Substance: CARBIDOPA\LEVODOPA
     Dosage: UNK
     Route: 065
  2. KYNMOBI [Suspect]
     Active Substance: APOMORPHINE HYDROCHLORIDE
     Indication: PARKINSON^S DISEASE
     Dosage: UNK
     Route: 048
     Dates: start: 20150101

REACTIONS (3)
  - Drug ineffective [Unknown]
  - Frustration tolerance decreased [Unknown]
  - Stress [Unknown]
